FAERS Safety Report 7559864-5 (Version None)
Quarter: 2011Q2

REPORT INFORMATION
  Report Type: 
  Country: None (occurrence: None)
  Receive Date: 20110617
  Receipt Date: 20110617
  Transmission Date: 20111010
  Serious: Yes (Hospitalization)
  Sender: FDA-Public Use
  Company Number: None

PATIENT
  Sex: Female
  Weight: 110 kg

DRUGS (2)
  1. VANCOMYCIN [Suspect]
     Indication: PNEUMONIA
     Dosage: 1.25GRAMS Q8 HOURS IV : 1 GRAM Q8  HOURS IV
     Route: 042
     Dates: start: 20110427, end: 20110430
  2. VANCOMYCIN [Suspect]
     Indication: UPPER RESPIRATORY TRACT INFECTION
     Dosage: 1.25GRAMS Q8 HOURS IV : 1 GRAM Q8  HOURS IV
     Route: 042
     Dates: start: 20110427, end: 20110430

REACTIONS (1)
  - RENAL FAILURE ACUTE [None]
